FAERS Safety Report 5894477-2 (Version None)
Quarter: 2008Q3

REPORT INFORMATION
  Report Type: 
  Country: None (occurrence: None)
  Receive Date: 20080923
  Receipt Date: 20080923
  Transmission Date: 20090109
  Serious: Yes (Hospitalization)
  Sender: FDA-Public Use
  Company Number: None

PATIENT
  Sex: Female
  Weight: 90.72 kg

DRUGS (14)
  1. CARBOPLATIN [Suspect]
     Dosage: 420 MG
  2. TAXOL [Suspect]
     Dosage: 270 MG
  3. ASPIRIN [Concomitant]
  4. ALLOPURINOL [Concomitant]
  5. ATENOLOL [Concomitant]
  6. COLCHICINE [Concomitant]
  7. COUMADIN [Concomitant]
  8. FERROUS SULFATE [Concomitant]
  9. GLIPIZIDE [Concomitant]
  10. LIPITOR [Concomitant]
  11. LISINOPRIL [Concomitant]
  12. PERCOCET [Concomitant]
  13. TRIAMTERENE AND HYDROCHLOROTHIAZIDE [Concomitant]
  14. ZOFRAN [Concomitant]

REACTIONS (2)
  - HAEMATOCRIT DECREASED [None]
  - HAEMOGLOBIN DECREASED [None]
